FAERS Safety Report 6326866-6 (Version None)
Quarter: 2009Q3

REPORT INFORMATION
  Report Type: 
  Country: None (occurrence: None)
  Receive Date: 20090825
  Receipt Date: 20090818
  Transmission Date: 20100115
  Serious: Yes (Hospitalization)
  Sender: FDA-Public Use
  Company Number: SE-JNJFOC-20090806227

PATIENT
  Sex: Male

DRUGS (2)
  1. IPREN [Suspect]
     Indication: MUSCLE RUPTURE
     Route: 048
  2. VOLTAREN [Suspect]
     Indication: MUSCLE RUPTURE
     Route: 048

REACTIONS (2)
  - GLOMERULONEPHRITIS MINIMAL LESION [None]
  - TUBULOINTERSTITIAL NEPHRITIS [None]
